FAERS Safety Report 23233224 (Version 1)
Quarter: 2023Q4

REPORT INFORMATION
  Report Type: Spontaneous
  Country: FR (occurrence: FR)
  Receive Date: 20231128
  Receipt Date: 20231128
  Transmission Date: 20240110
  Serious: Yes (Death, Other)
  Sender: FDA-Public Use
  Company Number: FR-ABBVIE-5516298

PATIENT
  Age: 73 Year
  Sex: Male

DRUGS (2)
  1. BOTULINUM TOXIN TYPE A [Suspect]
     Active Substance: BOTULINUM TOXIN TYPE A
     Indication: Salivary hypersecretion
     Dosage: TIME INTERVAL: AS NECESSARY: 25 UNITS IN EACH PAROTID GLAND
     Route: 065
     Dates: start: 20230626, end: 20230626
  2. BOTULINUM TOXIN TYPE A [Suspect]
     Active Substance: BOTULINUM TOXIN TYPE A
     Indication: Salivary hypersecretion
     Dosage: TIME INTERVAL: AS NECESSARY: 25 UNITS IN EACH SUBMAXILLARY
     Route: 065
     Dates: start: 20230626, end: 20230626

REACTIONS (5)
  - Death [Fatal]
  - Pneumonia [Unknown]
  - Haemodynamic instability [Unknown]
  - Off label use [Unknown]
  - Secretion discharge [Unknown]

NARRATIVE: CASE EVENT DATE: 20230101
